FAERS Safety Report 7749927-3 (Version None)
Quarter: 2011Q3

REPORT INFORMATION
  Report Type: 
  Country: None (occurrence: None)
  Receive Date: 20110914
  Receipt Date: 20110902
  Transmission Date: 20111222
  Serious: Yes (Hospitalization)
  Sender: FDA-Public Use
  Company Number: US-US-EMD SERONO, INC.-7081060

PATIENT
  Sex: Female

DRUGS (1)
  1. REBIF [Suspect]
     Indication: MULTIPLE SCLEROSIS
     Route: 058
     Dates: start: 20110228, end: 20110801

REACTIONS (4)
  - COGNITIVE DISORDER [None]
  - DRUG INEFFECTIVE [None]
  - SPEECH DISORDER [None]
  - URINARY TRACT INFECTION [None]
